FAERS Safety Report 4507404-7 (Version None)
Quarter: 2004Q4

REPORT INFORMATION
  Report Type: 
  Country: None (occurrence: None)
  Receive Date: 20041118
  Receipt Date: 20041105
  Transmission Date: 20050328
  Serious: Yes (Other)
  Sender: FDA-Public Use
  Company Number: 2004090846

PATIENT
  Age: 36 Year
  Sex: Female
  Weight: 78.0187 kg

DRUGS (1)
  1. NAFARELIN ACETATE (NAFARELIN ACETATE) [Suspect]
     Indication: MENORRHAGIA
     Dosage: (2.5 MG, 1 D), NASAL
     Route: 045
     Dates: start: 19970101

REACTIONS (6)
  - ABDOMINAL DISTENSION [None]
  - ABDOMINAL PAIN UPPER [None]
  - ASTHENIA [None]
  - FEELING ABNORMAL [None]
  - IRRITABLE BOWEL SYNDROME [None]
  - POISONING [None]
